FAERS Safety Report 22383403 (Version 1)
Quarter: 2023Q2

REPORT INFORMATION
  Report Type: Report from Study
  Country: US (occurrence: US)
  Receive Date: 20230530
  Receipt Date: 20230530
  Transmission Date: 20230722
  Serious: Yes (Hospitalization)
  Sender: FDA-Public Use
  Company Number: US-BEH-2023159172

PATIENT
  Age: 2 Year
  Sex: Male

DRUGS (1)
  1. HIZENTRA [Suspect]
     Active Substance: HUMAN IMMUNOGLOBULIN G
     Indication: Primary immunodeficiency syndrome
     Dosage: 3 GRAM
     Route: 058
     Dates: start: 2022

REACTIONS (4)
  - Influenza [Recovering/Resolving]
  - Rhinovirus infection [Recovering/Resolving]
  - No adverse event [Unknown]
  - Therapy change [Unknown]
